FAERS Safety Report 4382373-1 (Version None)
Quarter: 2004Q2

REPORT INFORMATION
  Report Type: 
  Country: None (occurrence: None)
  Receive Date: 20040615
  Receipt Date: 20040601
  Transmission Date: 20050107
  Serious: Yes (Hospitalization)
  Sender: FDA-Public Use
  Company Number: 2004S1000034

PATIENT
  Age: 47 Year
  Sex: Male
  Weight: 124.7392 kg

DRUGS (5)
  1. DELATESTRYL [Suspect]
     Indication: FRACTURE
     Dosage: 200 MG/L; QOW; IM
     Route: 030
     Dates: start: 20030101
  2. DELATESTRYL [Suspect]
     Indication: HORMONE REPLACEMENT THERAPY
     Dosage: 200 MG/L; QOW; IM
     Route: 030
     Dates: start: 20030101
  3. PEPCID [Concomitant]
  4. MULTI-VITAMINS [Concomitant]
  5. CALCIUM WITH VITAMIN D [Concomitant]

REACTIONS (7)
  - BLOOD PRESSURE INCREASED [None]
  - BONE PAIN [None]
  - DRUG INEFFECTIVE [None]
  - FATIGUE [None]
  - LIGAMENT INJURY [None]
  - PHARMACEUTICAL PRODUCT COMPLAINT [None]
  - SLUGGISHNESS [None]
